FAERS Safety Report 23638748 (Version 1)
Quarter: 2024Q1

REPORT INFORMATION
  Report Type: Spontaneous
  Country: DE (occurrence: DE)
  Receive Date: 20240315
  Receipt Date: 20240315
  Transmission Date: 20240410
  Serious: Yes (Life-Threatening, Hospitalization, Other)
  Sender: FDA-Public Use
  Company Number: DE-BIOVITRUM-2024-DE-001523

PATIENT

DRUGS (13)
  1. PEGCETACOPLAN [Suspect]
     Active Substance: PEGCETACOPLAN
     Indication: Paroxysmal nocturnal haemoglobinuria
     Dosage: TWICE A WEEK ON MONDAY AND FRIDAYTUE-8:00 FRI-8:00 SUBCUTANEOUSLY
     Route: 058
     Dates: start: 202303
  2. ROSUVASTATIN [Concomitant]
     Active Substance: ROSUVASTATIN
     Indication: Product used for unknown indication
     Dosage: ONLY IN THE EVENING 20:00 PERORAL
  3. BISOPROLOL FUMARATE [Concomitant]
     Active Substance: BISOPROLOL FUMARATE
     Indication: Product used for unknown indication
     Dosage: TWICE DAILY 8:00 - 20:00 PERORAL
  4. PIPERACILLIN SODIUM\TAZOBACTAM SODIUM [Concomitant]
     Active Substance: PIPERACILLIN SODIUM\TAZOBACTAM SODIUM
     Indication: Product used for unknown indication
     Dosage: 4G/0.5G SPKUM 1 DE DURING 30 MINUTE(S) 1 ANTIBIOTIC I.V. FILLING(S) - 0:00 8:00 16:00
     Dates: start: 202401
  5. METAMIZOLE SODIUM [Concomitant]
     Active Substance: METAMIZOLE SODIUM
     Indication: Pyrexia
     Dosage: MAX. 4/DAY
  6. METAMIZOLE SODIUM [Concomitant]
     Active Substance: METAMIZOLE SODIUM
     Indication: Pain
     Dosage: MAX. 4/DAY
  7. APIXABAN [Concomitant]
     Active Substance: APIXABAN
     Indication: Product used for unknown indication
     Dosage: ONCE DAILY 8:00 PERORAL
  8. ASPIRIN [Concomitant]
     Active Substance: ASPIRIN
     Indication: Product used for unknown indication
     Dosage: ONCE DAILY 8:00 PERORAL
  9. EMPAGLIFLOZIN [Concomitant]
     Active Substance: EMPAGLIFLOZIN
     Indication: Product used for unknown indication
     Dosage: ONCE DAILY 8:00 PERORAL PAUSED
  10. INSULIN NOS [Concomitant]
     Active Substance: INSULIN NOS
     Indication: Product used for unknown indication
     Dosage: IU/ML SPKUM 50 IU QS: ACCORDING TO BG (TARGET: 100 - 180 MG/DL) SYRINGE PUMP (CONTINUOUS)
  11. INSULIN NOS [Concomitant]
     Active Substance: INSULIN NOS
     Dosage: IU/ML SPKUM 50 IU QS: ACCORDING TO BG (TARGET: 100 - 180 MG/DL) SYRINGE PUMP (CONTINUOUS)
  12. PANTOPRAZOLE [Concomitant]
     Active Substance: PANTOPRAZOLE
     Indication: Product used for unknown indication
     Dosage: ONCE DAILY 8:00 PERORAL
  13. MOVICOL [Concomitant]
     Active Substance: POLYETHYLENE GLYCOL 3350\POTASSIUM CHLORIDE\SODIUM BICARBONATE\SODIUM CHLORIDE
     Indication: Product used for unknown indication
     Dosage: UNK

REACTIONS (8)
  - Septic shock [Unknown]
  - Renal abscess [Unknown]
  - Cardiogenic shock [Unknown]
  - Acute kidney injury [Unknown]
  - Dyskinesia [Unknown]
  - Bacterial translocation [Unknown]
  - Diarrhoea [Unknown]
  - Immunosuppression [Unknown]

NARRATIVE: CASE EVENT DATE: 20230501
